FAERS Safety Report 4499856-6 (Version None)
Quarter: 2004Q4

REPORT INFORMATION
  Report Type: 
  Country: None (occurrence: None)
  Receive Date: 20041109
  Receipt Date: 20041109
  Transmission Date: 20050328
  Serious: No
  Sender: FDA-Public Use
  Company Number: None

PATIENT
  Age: 42 Year
  Sex: Female
  Weight: 61.2356 kg

DRUGS (1)
  1. AMITRIPTYLINE HCL [Suspect]
     Indication: MIGRAINE
     Dosage: 10 MG QHS
     Dates: start: 20020501

REACTIONS (5)
  - CARDIAC MURMUR [None]
  - CHEST PAIN [None]
  - ELECTROCARDIOGRAM T WAVE ABNORMAL [None]
  - TREMOR [None]
  - VISION BLURRED [None]
